FAERS Safety Report 6903904-0 (Version None)
Quarter: 2010Q3

REPORT INFORMATION
  Report Type: 
  Country: None (occurrence: None)
  Receive Date: 20100804
  Receipt Date: 20090126
  Transmission Date: 20110219
  Serious: No
  Sender: FDA-Public Use
  Company Number: US-PFIZER INC-2008101391

PATIENT
  Sex: Female
  Weight: 97.959 kg

DRUGS (2)
  1. LYRICA [Suspect]
     Indication: FIBROMYALGIA
     Dosage: DAILY
     Dates: start: 20080101
  2. REQUIP [Concomitant]

REACTIONS (1)
  - WEIGHT INCREASED [None]
